FAERS Safety Report 8014368-0 (Version None)
Quarter: 2011Q4

REPORT INFORMATION
  Report Type: 
  Country: None (occurrence: None)
  Receive Date: 20111229
  Receipt Date: 20111222
  Transmission Date: 20120403
  Serious: Yes (Hospitalization, Other)
  Sender: FDA-Public Use
  Company Number: PHHY2009CA22381

PATIENT
  Sex: Male

DRUGS (8)
  1. HYDROMORPHONE HCL [Concomitant]
  2. EXJADE [Suspect]
     Indication: THALASSAEMIA
     Dosage: 2000 MG, UNK
     Route: 048
  3. CARBAMAZEPINE [Concomitant]
  4. METHADONE HCL [Concomitant]
  5. CORTISONE ACETATE [Concomitant]
  6. GABAPENTIN [Concomitant]
  7. SEROQUEL [Concomitant]
  8. CITALOPRAM [Concomitant]

REACTIONS (10)
  - WEIGHT DECREASED [None]
  - VOMITING [None]
  - VISUAL ACUITY REDUCED [None]
  - INFLUENZA [None]
  - MUSCLE SPASMS [None]
  - ASTHENIA [None]
  - DIARRHOEA [None]
  - HYPOACUSIS [None]
  - MOVEMENT DISORDER [None]
  - DYSURIA [None]
